FAERS Safety Report 6367663-5 (Version None)
Quarter: 2009Q3

REPORT INFORMATION
  Report Type: 
  Country: None (occurrence: None)
  Receive Date: 20090908
  Receipt Date: 20090323
  Transmission Date: 20100115
  Serious: Yes (Hospitalization)
  Sender: FDA-Public Use
  Company Number: PAR_02897_2009

PATIENT
  Age: 66 Year
  Sex: Male

DRUGS (1)
  1. MEGACE ES [Suspect]
     Indication: WEIGHT DECREASED
     Dosage: 5 ML QD, 625 MG/5 ML
     Dates: start: 20090203, end: 20090101

REACTIONS (1)
  - PULMONARY EMBOLISM [None]
